FAERS Safety Report 13829815 (Version 4)
Quarter: 2017Q3

REPORT INFORMATION
  Report Type: Report from Study
  Country: AU (occurrence: AU)
  Receive Date: 20170803
  Receipt Date: 20170918
  Transmission Date: 20171127
  Serious: Yes (Other)
  Sender: FDA-Public Use
  Company Number: PHHY2017AU113393

PATIENT
  Age: 46 Year
  Sex: Female

DRUGS (2)
  1. SANDOSTATIN LAR DEPOT [Suspect]
     Active Substance: OCTREOTIDE ACETATE
     Dosage: 10 MG, UNK
     Route: 030
  2. SANDOSTATIN LAR DEPOT [Suspect]
     Active Substance: OCTREOTIDE ACETATE
     Indication: ACROMEGALY
     Dosage: 10 MG, UNK
     Route: 030
     Dates: start: 2013

REACTIONS (5)
  - Metastases to chest wall [Unknown]
  - Hodgkin^s disease [Unknown]
  - Non-Hodgkin^s lymphoma [Unknown]
  - Cough [Unknown]
  - Lung disorder [Unknown]

NARRATIVE: CASE EVENT DATE: 201708
